FAERS Safety Report 4402910-8 (Version None)
Quarter: 2004Q3

REPORT INFORMATION
  Report Type: 
  Country: None (occurrence: None)
  Receive Date: 20040721
  Receipt Date: 20040709
  Transmission Date: 20050211
  Serious: Yes (Death, Other)
  Sender: FDA-Public Use
  Company Number: ES-BRISTOL-MYERS SQUIBB COMPANY-12636338

PATIENT
  Age: 29 Year
  Sex: Male

DRUGS (1)
  1. TRIAMCINOLONE ACETONIDE [Suspect]
     Indication: ASPIRATION JOINT
     Route: 014
     Dates: start: 19901008

REACTIONS (5)
  - ARTHRITIS BACTERIAL [None]
  - GASTROINTESTINAL HAEMORRHAGE [None]
  - ILEUS PARALYTIC [None]
  - MALNUTRITION [None]
  - OSTEOMYELITIS [None]
